FAERS Safety Report 18916870 (Version 1)
Quarter: 2021Q1

REPORT INFORMATION
  Report Type: Report from Study
  Country: US (occurrence: US)
  Receive Date: 20210219
  Receipt Date: 20210219
  Transmission Date: 20210420
  Serious: Yes (Hospitalization, Other)
  Sender: FDA-Public Use
  Company Number: US-JNJFOC-20210223877

PATIENT
  Age: 49 Year
  Sex: Female

DRUGS (2)
  1. SELEXIPAG [Suspect]
     Active Substance: SELEXIPAG
     Indication: PULMONARY ARTERIAL HYPERTENSION
     Route: 065
  2. MACITENTAN [Suspect]
     Active Substance: MACITENTAN
     Indication: PULMONARY ARTERIAL HYPERTENSION
     Route: 065

REACTIONS (8)
  - Presyncope [Recovered/Resolved]
  - Menometrorrhagia [Recovered/Resolved]
  - Unevaluable event [Recovered/Resolved]
  - Hypoxia [Recovered/Resolved]
  - Drug dependence [Recovered/Resolved]
  - Depression [Recovered/Resolved]
  - Dyspnoea exertional [Recovered/Resolved]
  - Blood disorder [Recovered/Resolved]

NARRATIVE: CASE EVENT DATE: 201912
